FAERS Safety Report 13495223 (Version 1)
Quarter: 2017Q2

REPORT INFORMATION
  Report Type: Spontaneous
  Country: US (occurrence: US)
  Receive Date: 20170427
  Receipt Date: 20170427
  Transmission Date: 20170830
  Serious: No
  Sender: FDA-Public Use
  Company Number: None

PATIENT
  Age: 53 Year
  Sex: Female

DRUGS (1)
  1. ENOXAPARIN [Suspect]
     Active Substance: ENOXAPARIN
     Indication: PULMONARY EMBOLISM
     Route: 042
     Dates: start: 20160902, end: 20160904

REACTIONS (5)
  - Gastric ulcer [None]
  - Thrombosis [None]
  - Duodenitis [None]
  - Abdominal pain upper [None]
  - Enteritis [None]

NARRATIVE: CASE EVENT DATE: 20160904
